FAERS Safety Report 8074207-9 (Version None)
Quarter: 2012Q1

REPORT INFORMATION
  Report Type: 
  Country: None (occurrence: None)
  Receive Date: 20120126
  Receipt Date: 20120123
  Transmission Date: 20120608
  Serious: Yes (Other)
  Sender: FDA-Public Use
  Company Number: US-PFIZER INC-2012019464

PATIENT

DRUGS (2)
  1. ZOLOFT [Suspect]
     Dosage: UNK
  2. ZOLOFT [Suspect]
     Dosage: 400 MG, UNK

REACTIONS (5)
  - HALLUCINATION [None]
  - AFFECTIVE DISORDER [None]
  - AGITATION [None]
  - SLEEP DISORDER [None]
  - INCORRECT DOSE ADMINISTERED [None]
